FAERS Safety Report 10637481 (Version 1)
Quarter: 2014Q4

REPORT INFORMATION
  Report Type: Spontaneous
  Country: None (occurrence: None)
  Receive Date: 20141205
  Receipt Date: 20141205
  Transmission Date: 20150529
  Serious: Yes (Other)
  Sender: FDA-Public Use
  Company Number: None

PATIENT
  Age: 42 Year
  Sex: Female
  Weight: 58.97 kg

DRUGS (1)
  1. CIPRO [Suspect]
     Active Substance: CIPROFLOXACIN HYDROCHLORIDE
     Indication: URINARY TRACT INFECTION
     Dosage: 500 MG BID 7 DAYS TWICE DAILY TAKEN BY MOUTH
     Route: 048
     Dates: start: 20141126, end: 20141202

REACTIONS (4)
  - Tinnitus [None]
  - Myalgia [None]
  - Neuropathy peripheral [None]
  - Arthralgia [None]

NARRATIVE: CASE EVENT DATE: 20141127
